FAERS Safety Report 5770259-7 (Version None)
Quarter: 2008Q2

REPORT INFORMATION
  Report Type: 
  Country: None (occurrence: None)
  Receive Date: 20080613
  Receipt Date: 20080428
  Transmission Date: 20081010
  Serious: No
  Sender: FDA-Public Use
  Company Number: US-ABBOTT-08P-163-0449549-00

PATIENT
  Sex: Female
  Weight: 54.48 kg

DRUGS (9)
  1. HUMIRA [Suspect]
     Indication: CROHN'S DISEASE
     Route: 058
     Dates: start: 20060901
  2. AZATHIOPRINE [Concomitant]
     Indication: CROHN'S DISEASE
     Route: 048
  3. LANSOPRAZOLE [Concomitant]
     Indication: PROPHYLAXIS AGAINST GASTROINTESTINAL ULCER
     Route: 048
  4. AMLODIPINE [Concomitant]
     Indication: HYPERTENSION
     Route: 048
     Dates: start: 20060101
  5. RALOXIFENE HYDROCHLORIDE [Concomitant]
     Indication: OSTEOPOROSIS PROPHYLAXIS
     Route: 048
     Dates: start: 20050101
  6. MACROGOL [Concomitant]
     Indication: RECTAL STENOSIS
     Route: 048
     Dates: start: 20060101
  7. CALCIUM [Concomitant]
     Indication: MEDICAL DIET
     Route: 048
     Dates: start: 20050101
  8. CYANOCOBALAMIN-TANNIN COMPLEX [Concomitant]
     Indication: MEDICAL DIET
     Route: 050
  9. VITAMINS [Concomitant]
     Indication: MEDICAL DIET
     Route: 048

REACTIONS (4)
  - ARTHRALGIA [None]
  - IRITIS [None]
  - PROCEDURAL COMPLICATION [None]
  - RASH PRURITIC [None]
